FAERS Safety Report 9424305 (Version 2)
Quarter: 2013Q3

REPORT INFORMATION
  Report Type: Spontaneous
  Country: IT (occurrence: IT)
  Receive Date: 20130729
  Receipt Date: 20130801
  Transmission Date: 20140515
  Serious: Yes (Hospitalization)
  Sender: FDA-Public Use
  Company Number: IT-JNJFOC-20130713529

PATIENT
  Age: 43 Year
  Sex: Female

DRUGS (1)
  1. TOPAMAX [Suspect]
     Indication: PRODUCT USED FOR UNKNOWN INDICATION
     Route: 048
     Dates: start: 20130721, end: 20130721

REACTIONS (5)
  - Sopor [Unknown]
  - Intentional overdose [Unknown]
  - Altered state of consciousness [Recovering/Resolving]
  - Suicidal ideation [Recovering/Resolving]
  - Drug abuse [Unknown]
